FAERS Safety Report 7412101-4 (Version None)
Quarter: 2011Q2

REPORT INFORMATION
  Report Type: 
  Country: None (occurrence: None)
  Receive Date: 20110408
  Receipt Date: 20110408
  Transmission Date: 20111010
  Serious: Yes (Other)
  Sender: FDA-Public Use
  Company Number: None

PATIENT
  Age: 65 Year
  Sex: Male
  Weight: 98 kg

DRUGS (1)
  1. ZOLPIDEM [Suspect]
     Dosage: 10 MG HS PO
     Route: 048
     Dates: start: 20080602, end: 20101208

REACTIONS (2)
  - DISORIENTATION [None]
  - SOMNAMBULISM [None]
